FAERS Safety Report 20032781 (Version 1)
Quarter: 2021Q4

REPORT INFORMATION
  Report Type: Spontaneous
  Country: PL (occurrence: PL)
  Receive Date: 20211104
  Receipt Date: 20211104
  Transmission Date: 20220303
  Serious: Yes (Life-Threatening, Other)
  Sender: FDA-Public Use
  Company Number: PL-CELLTRION INC.-2021PL013952

PATIENT

DRUGS (6)
  1. INFLIXIMAB [Suspect]
     Active Substance: INFLIXIMAB
     Indication: Psoriasis
     Dosage: 5 MG/KG
  2. INFLIXIMAB [Suspect]
     Active Substance: INFLIXIMAB
     Indication: Pustular psoriasis
     Dosage: UNK (CONTINUED ACCORDING TO THE STANDARD REGIMEN (WEEKS 0, 2, AND 6 AND 8-WEEKLY THEREAFTER)
  3. INFLIXIMAB [Suspect]
     Active Substance: INFLIXIMAB
     Dosage: UNK (CONTINUED ACCORDING TO THE STANDARD REGIMEN (WEEKS 0, 2, AND 6 AND 8-WEEKLY THEREAFER)
  4. METHOTREXATE SODIUM [Suspect]
     Active Substance: METHOTREXATE SODIUM
     Indication: Psoriasis
     Dosage: 7.5 MG, WEEKLY
  5. METHOTREXATE [Suspect]
     Active Substance: METHOTREXATE
     Indication: Pustular psoriasis
     Dosage: 7.5 MG PER WEEK
  6. ACITRETIN [Concomitant]
     Active Substance: ACITRETIN
     Dosage: 35  MG, DAILY (0.35 MG/KG)

REACTIONS (6)
  - Psoriasis [Recovering/Resolving]
  - Upper respiratory tract infection [Unknown]
  - Respiratory tract infection [Unknown]
  - Upper respiratory tract infection [Unknown]
  - Drug ineffective [Unknown]
  - Off label use [Unknown]
